FAERS Safety Report 8529323-1 (Version None)
Quarter: 2012Q3

REPORT INFORMATION
  Report Type: 
  Country: None (occurrence: None)
  Receive Date: 20120723
  Receipt Date: 20120709
  Transmission Date: 20120928
  Serious: No
  Sender: FDA-Public Use
  Company Number: US-009507513-1207USA002104

PATIENT

DRUGS (4)
  1. FOLIC ACID [Concomitant]
  2. CEPHALEXIN [Concomitant]
  3. LIPITOR [Concomitant]
  4. ZETIA [Suspect]
     Indication: BLOOD CHOLESTEROL INCREASED
     Dosage: 10 MG, QD
     Route: 048
     Dates: start: 20110101

REACTIONS (2)
  - FATIGUE [None]
  - MUSCULOSKELETAL DISCOMFORT [None]
